FAERS Safety Report 13822554 (Version 1)
Quarter: 2017Q3

REPORT INFORMATION
  Report Type: Spontaneous
  Country: US (occurrence: US)
  Receive Date: 20170801
  Receipt Date: 20170801
  Transmission Date: 20171127
  Serious: Yes (Hospitalization, Other)
  Sender: FDA-Public Use
  Company Number: US-PURDUE-USA-2017-0140017

PATIENT
  Age: 30 Year
  Sex: Female

DRUGS (1)
  1. HYSINGLA ER [Suspect]
     Active Substance: HYDROCODONE BITARTRATE
     Indication: SPINAL PAIN
     Dosage: 40 MG, Q24H
     Route: 048
     Dates: start: 201706, end: 201706

REACTIONS (7)
  - Intestinal haemorrhage [Unknown]
  - Gait inability [Recovered/Resolved]
  - Hypertension [Recovered/Resolved]
  - Cardiac murmur [Recovered/Resolved]
  - Heart rate increased [Recovered/Resolved]
  - Weight decreased [Recovered/Resolved]
  - Colitis [Recovered/Resolved]

NARRATIVE: CASE EVENT DATE: 201706
